FAERS Safety Report 9145730 (Version 3)
Quarter: 2019Q1

REPORT INFORMATION
  Report Type: Spontaneous
  Country: US (occurrence: US)
  Receive Date: 20130307
  Receipt Date: 20190208
  Transmission Date: 20190418
  Serious: Yes (Other)
  Sender: FDA-Public Use
  Company Number: US-ASTRAZENECA-2013SE14367

PATIENT
  Sex: Female

DRUGS (3)
  1. PRILOSEC [Suspect]
     Active Substance: OMEPRAZOLE MAGNESIUM
     Indication: BLOOD CHOLESTEROL INCREASED
     Route: 048
  2. PROTONIX [Suspect]
     Active Substance: PANTOPRAZOLE SODIUM
     Indication: BLOOD CHOLESTEROL INCREASED
     Route: 048
  3. CRESTOR [Suspect]
     Active Substance: ROSUVASTATIN CALCIUM
     Indication: BLOOD CHOLESTEROL INCREASED
     Route: 048

REACTIONS (9)
  - Myocardial infarction [Unknown]
  - Rebound acid hypersecretion [Unknown]
  - Type 2 diabetes mellitus [Unknown]
  - Renal failure [Unknown]
  - Rhabdomyolysis [Unknown]
  - Liver injury [Unknown]
  - Renal injury [Unknown]
  - Cardiomyopathy [Unknown]
  - Renal disorder [Unknown]
